FAERS Safety Report 19526869 (Version 2)
Quarter: 2021Q3

REPORT INFORMATION
  Report Type: Spontaneous
  Country: US (occurrence: US)
  Receive Date: 20210713
  Receipt Date: 20210726
  Transmission Date: 20211014
  Serious: No
  Sender: FDA-Public Use
  Company Number: US-ORGANON-O2107USA000871

PATIENT
  Age: 58 Year
  Sex: Female
  Weight: 67.12 kg

DRUGS (5)
  1. ASMANEX [Suspect]
     Active Substance: MOMETASONE FUROATE
     Indication: ASTHMA
     Dosage: 2 PUFFS EVERY MORNING
     Dates: start: 20210704, end: 20210708
  2. ZYRTEC [Concomitant]
     Active Substance: CETIRIZINE HYDROCHLORIDE
     Dosage: UNK
  3. ASMANEX [Suspect]
     Active Substance: MOMETASONE FUROATE
     Indication: ASTHMA
     Dosage: 2 PUFFS EVERY MORNING
     Dates: start: 20210708, end: 20210708
  4. ALBUTEROL HFA [Concomitant]
     Active Substance: ALBUTEROL SULFATE
     Dosage: UNK
  5. PROAIR BRONQUIAL [Concomitant]
     Dosage: UNK

REACTIONS (10)
  - Device malfunction [Unknown]
  - Circumstance or information capable of leading to device use error [Unknown]
  - Dizziness [Unknown]
  - Incorrect dose administered [Unknown]
  - Insomnia [Unknown]
  - Product use issue [Unknown]
  - Poor quality device used [Unknown]
  - Device malfunction [Unknown]
  - Poor quality device used [Unknown]
  - Fatigue [Unknown]

NARRATIVE: CASE EVENT DATE: 20210704
